FAERS Safety Report 23578585 (Version 1)
Quarter: 2024Q1

REPORT INFORMATION
  Report Type: Spontaneous
  Country: US (occurrence: US)
  Receive Date: 20240229
  Receipt Date: 20240229
  Transmission Date: 20240409
  Serious: Yes (Life-Threatening, Hospitalization, Other)
  Sender: FDA-Public Use
  Company Number: US-MLMSERVICE-20240212-4827455-1

PATIENT
  Age: 86 Year
  Sex: Male

DRUGS (4)
  1. MEMANTINE HYDROCHLORIDE [Suspect]
     Active Substance: MEMANTINE HYDROCHLORIDE
     Indication: Dizziness
     Dosage: 60 DOSAGE FORM
     Route: 065
  2. MEMANTINE HYDROCHLORIDE [Suspect]
     Active Substance: MEMANTINE HYDROCHLORIDE
     Dosage: 5 MILLIGRAM
     Route: 065
  3. MECLIZINE [Concomitant]
     Active Substance: MECLIZINE HYDROCHLORIDE
     Indication: Dizziness
     Dosage: 12.5 MILLIGRAM, 3 TIMES A DAY,EVERY 8 H AS NEEDED
     Route: 065
  4. METOPROLOL SUCCINATE [Concomitant]
     Active Substance: METOPROLOL SUCCINATE
     Indication: Product used for unknown indication
     Dosage: 50 MILLIGRAM, ONCE A DAY
     Route: 065

REACTIONS (8)
  - Hypertensive crisis [Recovered/Resolved]
  - Hallucination, auditory [Recovered/Resolved]
  - Mental status changes [Recovering/Resolving]
  - Ventricular extrasystoles [Recovered/Resolved]
  - Echolalia [Recovered/Resolved]
  - Intentional product misuse [Recovered/Resolved]
  - Wrong technique in product usage process [Recovered/Resolved]
  - Overdose [Recovered/Resolved]
